FAERS Safety Report 10827341 (Version 1)
Quarter: 2015Q1

REPORT INFORMATION
  Report Type: Report from Study
  Country: US (occurrence: US)
  Receive Date: 20150219
  Receipt Date: 20150219
  Transmission Date: 20150721
  Serious: No
  Sender: FDA-Public Use
  Company Number: US-ABBVIE-14K-163-1319904-00

PATIENT
  Age: 41 Year
  Sex: Male

DRUGS (3)
  1. HUMIRA [Suspect]
     Active Substance: ADALIMUMAB
     Indication: PSORIATIC ARTHROPATHY
     Route: 065
     Dates: start: 20141119, end: 20141119
  2. METHOTREXATE [Concomitant]
     Active Substance: METHOTREXATE
     Indication: PRODUCT USED FOR UNKNOWN INDICATION
  3. PREDNISONE. [Concomitant]
     Active Substance: PREDNISONE
     Indication: PRODUCT USED FOR UNKNOWN INDICATION

REACTIONS (13)
  - Bladder disorder [Not Recovered/Not Resolved]
  - Musculoskeletal pain [Unknown]
  - Influenza like illness [Unknown]
  - Dyspnoea [Unknown]
  - Tendon disorder [Unknown]
  - Feeling abnormal [Unknown]
  - Mobility decreased [Unknown]
  - Nasopharyngitis [Unknown]
  - Pollakiuria [Recovering/Resolving]
  - Malaise [Unknown]
  - Pain in extremity [Unknown]
  - Renal disorder [Not Recovered/Not Resolved]
  - Arthralgia [Recovering/Resolving]

NARRATIVE: CASE EVENT DATE: 201411
